FAERS Safety Report 21748738 (Version 1)
Quarter: 2022Q4

REPORT INFORMATION
  Report Type: Spontaneous
  Country: US (occurrence: None)
  Receive Date: 20221218
  Receipt Date: 20221218
  Transmission Date: 20230113
  Serious: Yes (Other)
  Sender: FDA-Public Use
  Company Number: None

PATIENT
  Age: 66 Year
  Sex: Male
  Weight: 90 kg

DRUGS (3)
  1. MOXIFLOXACIN [Suspect]
     Active Substance: MOXIFLOXACIN
     Indication: Bacterial prostatitis
     Dosage: OTHER QUANTITY : 1 TABLET(S);?FREQUENCY : DAILY;?
     Route: 048
     Dates: start: 20221217, end: 20221218
  2. CIPROFLOXACIN [Suspect]
     Active Substance: CIPROFLOXACIN
  3. LEVOFLOXACIN [Suspect]
     Active Substance: LEVOFLOXACIN

REACTIONS (3)
  - Arthralgia [None]
  - Musculoskeletal pain [None]
  - Neuropathy peripheral [None]

NARRATIVE: CASE EVENT DATE: 20221217
